FAERS Safety Report 6906012-8 (Version None)
Quarter: 2010Q3

REPORT INFORMATION
  Report Type: 
  Country: None (occurrence: None)
  Receive Date: 20100804
  Receipt Date: 20100723
  Transmission Date: 20110219
  Serious: Yes (Other)
  Sender: FDA-Public Use
  Company Number: PHHY2010PL32838

PATIENT
  Age: 18 Month
  Sex: Male

DRUGS (1)
  1. PIMECROLIMUS [Suspect]
     Indication: DERMATITIS ATOPIC
     Dosage: 1 %, BID
     Route: 061

REACTIONS (8)
  - ASTHENIA [None]
  - ECZEMA HERPETICUM [None]
  - LYMPHADENOPATHY [None]
  - MALAISE [None]
  - PYREXIA [None]
  - RASH [None]
  - RASH PUSTULAR [None]
  - SKIN EROSION [None]
